FAERS Safety Report 9015725 (Version 5)
Quarter: 2013Q4

REPORT INFORMATION
  Report Type: Spontaneous
  Country: US (occurrence: US)
  Receive Date: 20130116
  Receipt Date: 20131121
  Transmission Date: 20140711
  Serious: Yes (Hospitalization, Disabling, Other)
  Sender: FDA-Public Use
  Company Number: US-009507513-1301USA006585

PATIENT
  Sex: Female
  Weight: 70.3 kg

DRUGS (14)
  1. FOSAMAX [Suspect]
     Indication: OSTEOPENIA
     Dosage: 70 MG, QW
     Route: 048
     Dates: start: 20060123, end: 20110113
  2. FOSAMAX [Suspect]
     Indication: OSTEOPOROSIS
  3. ALENDRONATE SODIUM [Suspect]
     Indication: OSTEOPENIA
     Dosage: 70 MG, UNK
     Route: 048
     Dates: start: 20080206, end: 20110113
  4. CORTICOSTEROIDS (UNSPECIFIED) [Concomitant]
     Indication: STEROID THERAPY
     Dosage: UNK
     Dates: start: 1985
  5. AVANDIA [Concomitant]
     Indication: DIABETES MELLITUS
     Dosage: 4 MG, QD
     Dates: end: 2007
  6. GLUCOPHAGE [Concomitant]
     Indication: DIABETES MELLITUS
     Dosage: 500 MG, UNK
  7. PAXIL [Concomitant]
     Indication: DEPRESSION
     Dosage: 20-40 MG, QD
  8. PREDNISONE [Concomitant]
     Indication: ASTHMA
     Dosage: 10-30 MG, QD
  9. LIPITOR [Concomitant]
     Indication: HYPERLIPIDAEMIA
     Dosage: 20-40 MG, QD
  10. ADVAIR [Concomitant]
     Indication: ASTHMA
     Dosage: 50/500 MICROGRAM, BID
     Route: 055
  11. SINGULAIR [Concomitant]
     Indication: ASTHMA
     Dosage: 10 MG, QD
  12. METFORMIN [Concomitant]
     Indication: DIABETES MELLITUS INADEQUATE CONTROL
     Dosage: 750-1000 MG, BID
  13. COZAAR [Concomitant]
     Indication: HYPERTENSION
     Dosage: 50 MG, QD
  14. METOPROLOL [Concomitant]
     Indication: HYPERTENSION
     Dosage: 500 MG, BID

REACTIONS (42)
  - Femur fracture [Not Recovered/Not Resolved]
  - Femur fracture [Unknown]
  - Femur fracture [Unknown]
  - Intramedullary rod insertion [Unknown]
  - Removal of internal fixation [Unknown]
  - Internal fixation of fracture [Unknown]
  - Sepsis [Unknown]
  - Cellulitis [Unknown]
  - Spinal operation [Unknown]
  - Renal failure [Unknown]
  - Low turnover osteopathy [Unknown]
  - Anxiety [Not Recovered/Not Resolved]
  - Depression [Not Recovered/Not Resolved]
  - Anxiety [Unknown]
  - Fatigue [Unknown]
  - Stress [Unknown]
  - Sinusitis [Unknown]
  - Sinusitis [Unknown]
  - Diabetes mellitus inadequate control [Unknown]
  - Cataract operation [Unknown]
  - Sinus operation [Unknown]
  - Enchondroma [Unknown]
  - Osteoarthritis [Unknown]
  - Asthma [Unknown]
  - Neuropathy peripheral [Not Recovered/Not Resolved]
  - Mucosal dryness [Unknown]
  - Blue toe syndrome [Unknown]
  - Pallor [Unknown]
  - Sinus tachycardia [Unknown]
  - Bundle branch block right [Unknown]
  - Electrocardiogram T wave inversion [Unknown]
  - Hypertension [Unknown]
  - Staphylococcal infection [Unknown]
  - Atelectasis [Unknown]
  - Blood pressure decreased [Recovered/Resolved]
  - Myositis ossificans [Unknown]
  - Sleep apnoea syndrome [Unknown]
  - Lipoma [Unknown]
  - Pain in extremity [Unknown]
  - Back pain [Unknown]
  - Drug ineffective [Unknown]
  - Gastrooesophageal reflux disease [Unknown]
